FAERS Safety Report 6032227-X (Version None)
Quarter: 2009Q1

REPORT INFORMATION
  Report Type: 
  Country: None (occurrence: None)
  Receive Date: 20090108
  Receipt Date: 20081224
  Transmission Date: 20090719
  Serious: No
  Sender: FDA-Public Use
  Company Number: US-B.I. PHARMACEUTICALS,INC./RIDGEFIELD-2008-BP-17089BP

PATIENT
  Sex: Female

DRUGS (6)
  1. SPIRIVA [Suspect]
     Indication: CHRONIC OBSTRUCTIVE PULMONARY DISEASE
     Dosage: 18MCG
     Route: 055
     Dates: start: 20040101
  2. SPIRIVA [Suspect]
     Indication: EMPHYSEMA
  3. ALTACE [Concomitant]
  4. LASIX [Concomitant]
  5. OXYGEN [Concomitant]
  6. ADVAIR DISKUS 250/50 [Concomitant]

REACTIONS (3)
  - DIARRHOEA [None]
  - ORAL DISCOMFORT [None]
  - STOMATITIS [None]
